FAERS Safety Report 16444946 (Version 1)
Quarter: 2019Q2

REPORT INFORMATION
  Report Type: Report from Study
  Country: PK (occurrence: PK)
  Receive Date: 20190618
  Receipt Date: 20190618
  Transmission Date: 20190711
  Serious: Yes (Death)
  Sender: FDA-Public Use
  Company Number: PHHY2017PK205058

PATIENT
  Age: 20 Year
  Sex: Female
  Weight: 47 kg

DRUGS (1)
  1. TASIGNA [Suspect]
     Active Substance: NILOTINIB
     Indication: CHRONIC MYELOID LEUKAEMIA
     Dosage: 200 MG (2 CAPS IN MORNING AND 1 IN EVENING)
     Route: 048
     Dates: start: 20141224, end: 20150701

REACTIONS (1)
  - Death [Fatal]

NARRATIVE: CASE EVENT DATE: 20150908
